FAERS Safety Report 7471650-3 (Version None)
Quarter: 2011Q2

REPORT INFORMATION
  Report Type: 
  Country: None (occurrence: None)
  Receive Date: 20110511
  Receipt Date: 20110505
  Transmission Date: 20111010
  Serious: Yes (Death, Life-Threatening, Hospitalization)
  Sender: FDA-Public Use
  Company Number: FR-EISAI INC-E7389-01237-CLI-FR

PATIENT
  Sex: Female
  Weight: 67 kg

DRUGS (1)
  1. EPIRUBICIN HYDROCHLORIDE [Suspect]
     Indication: BREAST CANCER
     Route: 041
     Dates: start: 20110419

REACTIONS (1)
  - GENERAL PHYSICAL HEALTH DETERIORATION [None]
